FAERS Safety Report 8483265-9 (Version None)
Quarter: 2012Q3

REPORT INFORMATION
  Report Type: 
  Country: None (occurrence: None)
  Receive Date: 20120702
  Receipt Date: 20120628
  Transmission Date: 20120928
  Serious: No
  Sender: FDA-Public Use
  Company Number: US-TEVA-346074USA

PATIENT
  Sex: Female
  Weight: 45.4 kg

DRUGS (2)
  1. PLAN B ONE-STEP [Suspect]
     Indication: POST COITAL CONTRACEPTION
     Dosage: 1.5 MILLIGRAM;
     Route: 048
     Dates: start: 20120622, end: 20120622
  2. INHALER [Concomitant]
     Indication: ASTHMA

REACTIONS (4)
  - HEADACHE [None]
  - PELVIC PAIN [None]
  - ASTHENIA [None]
  - MENSTRUATION IRREGULAR [None]
